FAERS Safety Report 19935499 (Version 2)
Quarter: 2022Q3

REPORT INFORMATION
  Report Type: Report from Study
  Country: US (occurrence: US)
  Receive Date: 20211008
  Receipt Date: 20220909
  Transmission Date: 20221027
  Serious: Yes (Disabling, Other)
  Sender: FDA-Public Use
  Company Number: US-TEVA-2021-US-1961023

PATIENT
  Age: 56 Year
  Sex: Male

DRUGS (2)
  1. COPAXONE [Suspect]
     Active Substance: GLATIRAMER ACETATE
     Indication: Product used for unknown indication
     Dosage: FORM STRENGTH: UNKNOWN
     Route: 058
     Dates: start: 20070501
  2. DEVICE [Suspect]
     Active Substance: DEVICE
     Indication: Product used for unknown indication
     Route: 065

REACTIONS (13)
  - Disability [Unknown]
  - Injection site cellulitis [Unknown]
  - Injection site induration [Unknown]
  - Injection site swelling [Unknown]
  - Dysstasia [Unknown]
  - Chills [Unknown]
  - Pyrexia [Unknown]
  - Injection site warmth [Unknown]
  - Injection site discolouration [Unknown]
  - Injection site pain [Unknown]
  - Pain [Unknown]
  - Injection site haemorrhage [Unknown]
  - Incorrect drug administration rate [Unknown]

NARRATIVE: CASE EVENT DATE: 20200101
